FAERS Safety Report 11886800 (Version 1)
Quarter: 2016Q1

REPORT INFORMATION
  Report Type: Spontaneous
  Country: US (occurrence: US)
  Receive Date: 20160104
  Receipt Date: 20160104
  Transmission Date: 20160526
  Serious: No
  Sender: FDA-Public Use
  Company Number: US-009507513-1512USA014654

PATIENT
  Age: 79 Year
  Sex: Female

DRUGS (7)
  1. ATENOLOL. [Concomitant]
     Active Substance: ATENOLOL
  2. BELSOMRA [Suspect]
     Active Substance: SUVOREXANT
     Indication: SLEEP DISORDER
     Dosage: 10 MG, QD
     Route: 048
     Dates: start: 20151228
  3. AMLODIPINE [Concomitant]
     Active Substance: AMLODIPINE BESYLATE
  4. BELSOMRA [Suspect]
     Active Substance: SUVOREXANT
     Dosage: 5 MG, QD
     Route: 048
     Dates: start: 20151226
  5. ESCITALOPRAM [Concomitant]
     Active Substance: ESCITALOPRAM OXALATE
  6. BELSOMRA [Suspect]
     Active Substance: SUVOREXANT
     Dosage: 5 MG TABLET AT 9:30 PM AND THEN ANOTHER 5 MG TABLET AT 3:30 AM.
     Route: 048
     Dates: start: 20151227
  7. ZOCOR [Concomitant]
     Active Substance: SIMVASTATIN

REACTIONS (1)
  - Drug ineffective [Unknown]

NARRATIVE: CASE EVENT DATE: 20151226
